FAERS Safety Report 13978534 (Version 1)
Quarter: 2017Q3

REPORT INFORMATION
  Report Type: Spontaneous
  Country: GB (occurrence: GB)
  Receive Date: 20170915
  Receipt Date: 20170915
  Transmission Date: 20171128
  Serious: Yes (Hospitalization, Other)
  Sender: FDA-Public Use
  Company Number: GB-EMD SERONO-8181710

PATIENT
  Sex: Female

DRUGS (1)
  1. REBIF [Suspect]
     Active Substance: INTERFERON BETA-1A
     Indication: MULTIPLE SCLEROSIS
     Route: 058
     Dates: start: 20100514

REACTIONS (5)
  - Drug dependence [Unknown]
  - Multiple sclerosis relapse [Unknown]
  - Sleep disorder [Unknown]
  - Cardiac disorder [Unknown]
  - Drug dose omission [Unknown]
